FAERS Safety Report 17568311 (Version 1)
Quarter: 2020Q1

REPORT INFORMATION
  Report Type: Report from Study
  Country: None (occurrence: GB)
  Receive Date: 20200320
  Receipt Date: 20200320
  Transmission Date: 20200409
  Serious: Yes (Hospitalization)
  Sender: FDA-Public Use
  Company Number: GB-ABBVIE-20P-167-3264302-00

PATIENT
  Age: 53 Year
  Sex: Female

DRUGS (2)
  1. IBRUTINIB [Suspect]
     Active Substance: IBRUTINIB
     Indication: CHRONIC LYMPHOCYTIC LEUKAEMIA
     Dosage: FREQUENCY: PER PROTOCOL; LAST DOSE PRIOR TO SAE: 31 JAN 2020
     Route: 048
     Dates: start: 20180521
  2. VENETOCLAX. [Suspect]
     Active Substance: VENETOCLAX
     Indication: CHRONIC LYMPHOCYTIC LEUKAEMIA
     Dosage: FREQUENCY: PER PROTOCOL; LAST DOSE PRIOR TO SAE: 31 JAN 2020
     Route: 048
     Dates: start: 20180816

REACTIONS (3)
  - Respiratory syncytial virus infection [Recovered/Resolved with Sequelae]
  - Rhinovirus infection [Recovered/Resolved with Sequelae]
  - Upper respiratory tract infection [Recovered/Resolved with Sequelae]

NARRATIVE: CASE EVENT DATE: 20200131
